FAERS Safety Report 23502492 (Version 1)
Quarter: 2024Q1

REPORT INFORMATION
  Report Type: Spontaneous
  Country: US (occurrence: US)
  Receive Date: 20240208
  Receipt Date: 20240208
  Transmission Date: 20240409
  Serious: No
  Sender: FDA-Public Use
  Company Number: US-INTRA-CELLULAR THERAPIES, INC.-2023ICT00422

PATIENT
  Sex: Female

DRUGS (7)
  1. CAPLYTA [Suspect]
     Active Substance: LUMATEPERONE
     Indication: Insomnia
     Dosage: UNK
     Dates: start: 202303, end: 202303
  2. TEMAZEPAM [Suspect]
     Active Substance: TEMAZEPAM
     Indication: Insomnia
     Dosage: UNK
     Dates: start: 202303, end: 202303
  3. TEMAZEPAM [Suspect]
     Active Substance: TEMAZEPAM
     Dosage: 2 DOSAGE UNITS
     Dates: start: 202303, end: 202303
  4. DIETARY SUPPLEMENT [Concomitant]
     Active Substance: DIETARY SUPPLEMENT
     Dosage: UNK
     Dates: start: 202303
  5. CYSTEINE [Concomitant]
     Active Substance: CYSTEINE
     Dosage: UNK
     Dates: start: 202303
  6. MELATONIN [Concomitant]
     Active Substance: MELATONIN
     Dosage: UNK
     Dates: start: 202303
  7. MAGNESIUM [Concomitant]
     Active Substance: MAGNESIUM
     Dosage: UNK
     Dates: start: 202303

REACTIONS (3)
  - Off label use [Unknown]
  - Feeling abnormal [Unknown]
  - Performance status decreased [Unknown]

NARRATIVE: CASE EVENT DATE: 20230301
